FAERS Safety Report 4389626-1 (Version None)
Quarter: 2004Q3

REPORT INFORMATION
  Report Type: 
  Country: None (occurrence: None)
  Receive Date: 20040702
  Receipt Date: 20040518
  Transmission Date: 20050211
  Serious: Yes (Death, Life-Threatening, Hospitalization, Disabling)
  Sender: FDA-Public Use
  Company Number: BE-MERCK-0405BEL00029

PATIENT
  Age: 55 Year
  Sex: Male
  Weight: 45 kg

DRUGS (13)
  1. AMPHOTERICIN B [Concomitant]
     Indication: FUNGAL INFECTION
     Route: 042
     Dates: start: 20031121, end: 20031203
  2. AMPHOTERICIN B [Concomitant]
     Indication: PYREXIA
     Route: 042
     Dates: start: 20031121, end: 20031203
  3. CANCIDAS [Suspect]
     Indication: FUNGAL INFECTION
     Route: 042
     Dates: start: 20031203, end: 20031203
  4. CANCIDAS [Suspect]
     Route: 042
     Dates: start: 20031204, end: 20040226
  5. CYCLOSPORINE [Suspect]
     Indication: IMMUNOSUPPRESSION
     Route: 048
     Dates: start: 20031029, end: 20040421
  6. FLUCONAZOLE [Concomitant]
     Indication: ANTIFUNGAL PROPHYLAXIS
     Route: 042
     Dates: start: 20031030, end: 20031120
  7. METHYLPREDNISOLONE [Suspect]
     Indication: GRAFT VERSUS HOST DISEASE
     Route: 048
     Dates: start: 20031029, end: 20031030
  8. METHYLPREDNISOLONE [Suspect]
     Route: 048
     Dates: start: 20031031, end: 20031112
  9. METHYLPREDNISOLONE [Suspect]
     Route: 048
     Dates: start: 20040317, end: 20040322
  10. METHYLPREDNISOLONE [Suspect]
     Route: 048
     Dates: start: 20040324, end: 20040421
  11. METHYLPREDNISOLONE SODIUM SUCCINATE [Suspect]
     Indication: GRAFT VERSUS HOST DISEASE
     Route: 042
     Dates: start: 20031217, end: 20031222
  12. METHYLPREDNISOLONE SODIUM SUCCINATE [Suspect]
     Route: 042
     Dates: start: 20040313, end: 20040317
  13. METHYLPREDNISOLONE SODIUM SUCCINATE [Suspect]
     Route: 042
     Dates: start: 20040323, end: 20040323

REACTIONS (3)
  - ASPERGILLOSIS [None]
  - DRUG INEFFECTIVE [None]
  - GRAFT VERSUS HOST DISEASE [None]
